FAERS Safety Report 12901419 (Version 2)
Quarter: 2021Q1

REPORT INFORMATION
  Report Type: Report from Study
  Country: DE (occurrence: DE)
  Receive Date: 20161101
  Receipt Date: 20210216
  Transmission Date: 20210419
  Serious: Yes (Hospitalization)
  Sender: FDA-Public Use
  Company Number: DE-BAXTER-2016BAX054941

PATIENT
  Age: 50 Year
  Sex: Female
  Weight: 69 kg

DRUGS (11)
  1. PACLITAXEL. [Suspect]
     Active Substance: PACLITAXEL
     Indication: TRIPLE NEGATIVE BREAST CANCER
     Dosage: DAY 1 OF 12 WEEKLY CYCLES  DURING CHEMOTHERAPY SEGMENT 1
     Route: 042
     Dates: start: 20150925, end: 20151211
  2. DOLOPOSTERINE [Concomitant]
     Indication: ANAL INFECTION
     Route: 003
     Dates: start: 20151209, end: 20151218
  3. ENDOXAN 1G [Suspect]
     Active Substance: CYCLOPHOSPHAMIDE
     Indication: TRIPLE NEGATIVE BREAST CANCER
     Dosage: DAY 1 OF FOUR 21?DAY CYCLES DURING CHEMOTHERAPY SEGMENT 2
     Route: 041
     Dates: start: 20151218
  4. DOXORUBICIN [Suspect]
     Active Substance: DOXORUBICIN
     Indication: TRIPLE NEGATIVE BREAST CANCER
     Dosage: DAY 1 OF FOUR 21 DAY CYCLES DURING CHEMOTHERAPY SEGMENT 2
     Route: 041
     Dates: start: 20151218
  5. ICHTYOL SALVE [Concomitant]
     Indication: LOCALISED INFECTION
     Route: 003
     Dates: start: 20151229, end: 20160102
  6. ABT?888 [Suspect]
     Active Substance: VELIPARIB
     Indication: TRIPLE NEGATIVE BREAST CANCER
     Route: 048
     Dates: start: 20150925, end: 20151210
  7. VITAMIN C [Concomitant]
     Active Substance: ASCORBIC ACID
     Indication: PROPHYLAXIS
     Route: 048
     Dates: start: 20150929
  8. ALUDROX [Concomitant]
     Indication: PAIN IN EXTREMITY
     Route: 048
     Dates: start: 20150929
  9. CARBOPLATIN. [Suspect]
     Active Substance: CARBOPLATIN
     Indication: TRIPLE NEGATIVE BREAST CANCER
     Dosage: DAY 1 OF FOUR 21?DAY CYCLES DURING CHEMOTHERAPY SEGMENT 1
     Route: 042
     Dates: start: 20150925, end: 20151127
  10. VITAMIN D [Concomitant]
     Active Substance: VITAMIN D NOS
     Indication: PROPHYLAXIS
     Route: 048
     Dates: start: 20150929
  11. BEPANTHEN [Concomitant]
     Indication: IMPAIRED HEALING
     Route: 003
     Dates: start: 20151204, end: 20151211

REACTIONS (1)
  - Wrist fracture [Recovered/Resolved]

NARRATIVE: CASE EVENT DATE: 20160120
